FAERS Safety Report 9531252 (Version 1)
Quarter: 2013Q3

REPORT INFORMATION
  Report Type: Spontaneous
  Country: US (occurrence: None)
  Receive Date: 20130916
  Receipt Date: 20130916
  Transmission Date: 20140515
  Serious: Yes (Other)
  Sender: FDA-Public Use
  Company Number: None

PATIENT
  Age: 40 Year
  Sex: Female
  Weight: 73.48 kg

DRUGS (2)
  1. CYMBALTA [Suspect]
     Indication: FIBROMYALGIA
     Dosage: 1 CAPSULE ONCE DAILY
     Route: 048
     Dates: start: 20130608, end: 20130914
  2. CYMBALTA [Suspect]
     Indication: BACK PAIN
     Dosage: 1 CAPSULE ONCE DAILY
     Route: 048
     Dates: start: 20130608, end: 20130914

REACTIONS (2)
  - Wrong technique in drug usage process [None]
  - Withdrawal syndrome [None]
